FAERS Safety Report 11938630 (Version 3)
Quarter: 2016Q2

REPORT INFORMATION
  Report Type: Report from Study
  Country: US (occurrence: US)
  Receive Date: 20160122
  Receipt Date: 20160412
  Transmission Date: 20160815
  Serious: Yes (Other)
  Sender: FDA-Public Use
  Company Number: US-AMGEN-USASL2016004050

PATIENT
  Age: 74 Year
  Sex: Female

DRUGS (1)
  1. ENBREL [Suspect]
     Active Substance: ETANERCEPT
     Indication: RHEUMATOID ARTHRITIS
     Dosage: 50 MG, QWK
     Route: 065
     Dates: start: 20150820, end: 201511

REACTIONS (5)
  - Poor peripheral circulation [Unknown]
  - Breast cancer female [Unknown]
  - Breast mass [Unknown]
  - Hypoaesthesia [Unknown]
  - Joint swelling [Unknown]

NARRATIVE: CASE EVENT DATE: 20160105
